FAERS Safety Report 10243313 (Version 1)
Quarter: 2014Q2

REPORT INFORMATION
  Report Type: Report from Study
  Country: US (occurrence: US)
  Receive Date: 20140618
  Receipt Date: 20140618
  Transmission Date: 20141212
  Serious: Yes (Other)
  Sender: FDA-Public Use
  Company Number: PHEH2014US012057

PATIENT
  Sex: Female
  Weight: 51.25 kg

DRUGS (1)
  1. GILENYA [Suspect]
     Indication: MULTIPLE SCLEROSIS
     Dosage: 0.5 MG, QD
     Route: 048
     Dates: start: 20140520, end: 20140608

REACTIONS (4)
  - Apnoea [Unknown]
  - Nervousness [Unknown]
  - Altered state of consciousness [Unknown]
  - Asthenia [Unknown]
